FAERS Safety Report 23065205 (Version 1)
Quarter: 2023Q4

REPORT INFORMATION
  Report Type: Report from Study
  Country: US (occurrence: None)
  Receive Date: 20231013
  Receipt Date: 20231013
  Transmission Date: 20240109
  Serious: Yes (Other)
  Sender: FDA-Public Use
  Company Number: 2023A229083

PATIENT
  Sex: Female

DRUGS (16)
  1. LYNPARZA [Suspect]
     Active Substance: OLAPARIB
     Indication: Ovarian cancer
     Route: 048
  2. ELIQUIS [Concomitant]
     Active Substance: APIXABAN
  3. NUCALA [Concomitant]
     Active Substance: MEPOLIZUMAB
  4. AZELASTINE HYDROCHLORIDE\FLUTICASONE PROPIONATE [Concomitant]
     Active Substance: AZELASTINE HYDROCHLORIDE\FLUTICASONE PROPIONATE
  5. TYLENOL [Concomitant]
     Active Substance: ACETAMINOPHEN
     Dosage: EXTRA STRENGTH
  6. MONTELUKAST SODIUM [Concomitant]
     Active Substance: MONTELUKAST SODIUM
  7. VITAMIN D3 [Concomitant]
     Active Substance: CHOLECALCIFEROL
  8. ZYRTEC [Concomitant]
     Active Substance: CETIRIZINE HYDROCHLORIDE
  9. VALSARTAN [Concomitant]
     Active Substance: VALSARTAN
  10. FAMOTIDINE [Concomitant]
     Active Substance: FAMOTIDINE
  11. ATENOLOL [Concomitant]
     Active Substance: ATENOLOL
  12. BENADRYL [Concomitant]
     Active Substance: DIPHENHYDRAMINE HYDROCHLORIDE
  13. WOMEN MULTIVITAMIN [Concomitant]
  14. VITAMIN C [Concomitant]
     Active Substance: ASCORBIC ACID
  15. OMEGA 3 [Concomitant]
     Active Substance: CAPSAICIN
  16. VITAMIN B12 [Concomitant]
     Active Substance: CYANOCOBALAMIN

REACTIONS (7)
  - Atrial fibrillation [Unknown]
  - Brain fog [Unknown]
  - Bronchitis [Unknown]
  - Laryngitis [Unknown]
  - COVID-19 [Unknown]
  - Fatigue [Unknown]
  - Dyspnoea [Unknown]
